FAERS Safety Report 23446421 (Version 1)
Quarter: 2024Q1

REPORT INFORMATION
  Report Type: Spontaneous
  Country: US (occurrence: US)
  Receive Date: 20240126
  Receipt Date: 20240126
  Transmission Date: 20240410
  Serious: No
  Sender: FDA-Public Use
  Company Number: US-MYLANLABS-2024M1005576

PATIENT

DRUGS (3)
  1. XANAX [Suspect]
     Active Substance: ALPRAZOLAM
     Indication: Product used for unknown indication
     Dosage: 12.5 MILLIGRAM, PRN (1/2 TABLET)
     Route: 048
  2. ADVIL [Concomitant]
     Active Substance: IBUPROFEN
     Dosage: UNK, PRN
     Route: 065
  3. DIFLUCAN [Concomitant]
     Active Substance: FLUCONAZOLE
     Dosage: 1 DOSAGE FORM PRN (BY MOUTH AS DIRECTED. REPEAT IN 72 HOURS)
     Route: 048

REACTIONS (1)
  - Off label use [Unknown]
